FAERS Safety Report 8250328-2 (Version None)
Quarter: 2012Q1

REPORT INFORMATION
  Report Type: 
  Country: None (occurrence: None)
  Receive Date: 20120328
  Receipt Date: 20120315
  Transmission Date: 20120608
  Serious: Yes (Other)
  Sender: FDA-Public Use
  Company Number: 2012AP000736

PATIENT
  Age: 62 Year
  Sex: Male

DRUGS (5)
  1. ALBUTEROL SULFATE [Concomitant]
  2. BENDROFLUMETHIAZIDE (BENDROFLUMETHIAZIDE) [Concomitant]
  3. SIMVASTATIN [Concomitant]
  4. RAMIPRIL [Suspect]
     Dates: start: 20120229
  5. AMLODIPINE [Concomitant]

REACTIONS (3)
  - COUGH [None]
  - DYSPNOEA [None]
  - WHEEZING [None]
